FAERS Safety Report 10507215 (Version 2)
Quarter: 2014Q4

REPORT INFORMATION
  Report Type: Spontaneous
  Country: BR (occurrence: BR)
  Receive Date: 20141009
  Receipt Date: 20141223
  Transmission Date: 20150528
  Serious: Yes (Death, Hospitalization, Other)
  Sender: FDA-Public Use
  Company Number: BR-ALEXION PHARMACEUTICALS INC-A201403789

PATIENT

DRUGS (8)
  1. CALCITRIOL. [Concomitant]
     Active Substance: CALCITRIOL
     Indication: PRODUCT USED FOR UNKNOWN INDICATION
     Route: 065
  2. CALCIUM [Concomitant]
     Active Substance: CALCIUM
     Indication: PRODUCT USED FOR UNKNOWN INDICATION
     Route: 065
  3. B COMPLEX                          /06817001/ [Concomitant]
     Indication: PRODUCT USED FOR UNKNOWN INDICATION
     Route: 065
  4. SOLIRIS [Suspect]
     Active Substance: ECULIZUMAB
     Indication: HAEMOLYTIC URAEMIC SYNDROME
     Dosage: 600 MG, QW
     Route: 042
     Dates: start: 20131122
  5. SOLIRIS [Suspect]
     Active Substance: ECULIZUMAB
     Dosage: 900 MG, Q2W
     Route: 042
     Dates: start: 20131206
  6. SOLIRIS [Suspect]
     Active Substance: ECULIZUMAB
     Dosage: 1200 MG, Q2W
     Route: 042
  7. PREDNISONE. [Concomitant]
     Active Substance: PREDNISONE
     Indication: PRODUCT USED FOR UNKNOWN INDICATION
     Route: 065
  8. EPOETIN ALFA [Concomitant]
     Active Substance: ERYTHROPOIETIN
     Indication: PRODUCT USED FOR UNKNOWN INDICATION
     Route: 065

REACTIONS (31)
  - Ascites [Unknown]
  - Anuria [Unknown]
  - Somnolence [Unknown]
  - Pyrexia [Not Recovered/Not Resolved]
  - Subdural haematoma [Fatal]
  - Generalised oedema [Unknown]
  - Oliguria [Unknown]
  - Headache [Unknown]
  - Rectal haemorrhage [Recovered/Resolved]
  - Renal impairment [Unknown]
  - Hypercalcaemia [Recovered/Resolved]
  - Subdural haematoma [Recovering/Resolving]
  - Haematocrit decreased [Unknown]
  - Haemorrhagic stroke [Recovered/Resolved]
  - Generalised tonic-clonic seizure [Unknown]
  - Hyperreflexia [Unknown]
  - Nausea [Unknown]
  - Hyperparathyroidism [Unknown]
  - Blood pressure increased [Unknown]
  - Bacterial sepsis [Unknown]
  - Peritonitis bacterial [Unknown]
  - Hypotension [Recovering/Resolving]
  - Vomiting [Unknown]
  - Azotaemia [Unknown]
  - Aphasia [Unknown]
  - Hemiparesis [Unknown]
  - Diarrhoea [Unknown]
  - Cerebrovascular accident [Unknown]
  - Depressed level of consciousness [Recovering/Resolving]
  - Vomiting [Recovered/Resolved]
  - Abdominal pain [Recovering/Resolving]

NARRATIVE: CASE EVENT DATE: 201312
